FAERS Safety Report 15586637 (Version 1)
Quarter: 2018Q4

REPORT INFORMATION
  Report Type: Spontaneous
  Country: US (occurrence: US)
  Receive Date: 20181105
  Receipt Date: 20181105
  Transmission Date: 20190205
  Serious: Yes (Death, Life-Threatening, Hospitalization, Other)
  Sender: FDA-Public Use
  Company Number: US-ACELLA PHARMACEUTICALS, LLC-2058407

PATIENT
  Age: 43 Year
  Sex: Female

DRUGS (2)
  1. ALPRAZOLAM. [Suspect]
     Active Substance: ALPRAZOLAM
  2. GABAPENTIN. [Suspect]
     Active Substance: GABAPENTIN

REACTIONS (7)
  - Electrocardiogram QT prolonged [Fatal]
  - Respiratory depression [Fatal]
  - Death [Fatal]
  - Myocardial ischaemia [Fatal]
  - Anion gap [Fatal]
  - Electrocardiogram QRS complex prolonged [Fatal]
  - Metabolic acidosis [Fatal]
